FAERS Safety Report 6795604-5 (Version None)
Quarter: 2010Q2

REPORT INFORMATION
  Report Type: 
  Country: None (occurrence: None)
  Receive Date: 20100625
  Receipt Date: 20100615
  Transmission Date: 20101027
  Serious: Yes (Other)
  Sender: FDA-Public Use
  Company Number: TR-WATSON-2010-08043

PATIENT
  Age: 33 Year
  Sex: Male

DRUGS (3)
  1. METHYLPREDNISOLONE ACETATE [Suspect]
     Indication: THYMOMA
     Dosage: 1000 MG, UNK
  2. CISPLATIN [Suspect]
     Indication: THYMOMA
     Dosage: UNK
  3. DOXORUBICIN HCL [Suspect]
     Indication: THYMOMA
     Dosage: UNK

REACTIONS (1)
  - TUMOUR LYSIS SYNDROME [None]
